FAERS Safety Report 23404995 (Version 1)
Quarter: 2024Q1

REPORT INFORMATION
  Report Type: Spontaneous
  Country: DE (occurrence: DE)
  Receive Date: 20240116
  Receipt Date: 20240116
  Transmission Date: 20240410
  Serious: Yes (Death, Hospitalization, Other)
  Sender: FDA-Public Use
  Company Number: None

PATIENT
  Age: 58 Year
  Sex: Female
  Weight: 81 kg

DRUGS (38)
  1. DOCETAXEL [Suspect]
     Active Substance: DOCETAXEL\DOCETAXEL ANHYDROUS
     Indication: HER2 positive breast cancer
     Dosage: 116.4 MG, TIW(DAILY DOSE: 116.4 MG MILLGRAM(S) EVERY 3 WEEKS)
     Route: 042
     Dates: start: 20140310, end: 20140310
  2. DOCETAXEL [Suspect]
     Active Substance: DOCETAXEL\DOCETAXEL ANHYDROUS
     Dosage: 138.75 MG, TIW(DAILY DOSE: 138.75 MG MILLGRAM(S) EVERY 3 WEEKS)
     Route: 042
     Dates: start: 20140422, end: 20140422
  3. DOCETAXEL [Suspect]
     Active Substance: DOCETAXEL\DOCETAXEL ANHYDROUS
     Dosage: 140.25 MG, TIW(DAILY DOSE: 140.25 MG MILLGRAM(S) EVERY 3 WEEKS)
     Route: 042
     Dates: start: 20140331, end: 20140331
  4. DOCETAXEL [Suspect]
     Active Substance: DOCETAXEL\DOCETAXEL ANHYDROUS
     Dosage: 140.25 MG, TIW(DAILY DOSE: 140.25 MG MILLGRAM(S) EVERY 3 WEEKS)
     Route: 042
     Dates: start: 20140513, end: 20140513
  5. DOCETAXEL [Suspect]
     Active Substance: DOCETAXEL\DOCETAXEL ANHYDROUS
     Dosage: 183 MG, TIW(DAILY DOSE: 183 MG MILLGRAM(S) EVERY 3 WEEKS)
     Route: 042
  6. DOCETAXEL [Suspect]
     Active Substance: DOCETAXEL\DOCETAXEL ANHYDROUS
     Dosage: 187 MG, TIW(DAILY DOSE: 187 MG MILLGRAM(S) EVERY 3 WEEKS)
     Route: 065
     Dates: start: 20140603, end: 20140624
  7. HERCEPTIN [Suspect]
     Active Substance: TRASTUZUMAB
     Dosage: 444 MG, TIW(DAILY DOSE: 444 MG MILLGRAM(S) EVERY 3 WEEKS)
     Route: 042
     Dates: start: 20140331, end: 20140331
  8. HERCEPTIN [Suspect]
     Active Substance: TRASTUZUMAB
     Dosage: 422 MG
     Route: 042
     Dates: start: 20140805, end: 20141013
  9. HERCEPTIN [Suspect]
     Active Substance: TRASTUZUMAB
     Dosage: 432 MG, TIW(DAILY DOSE: 432 MG MILLGRAM(S) EVERY 3 WEEKS)
     Route: 042
     Dates: start: 20130422, end: 20130422
  10. HERCEPTIN [Suspect]
     Active Substance: TRASTUZUMAB
     Dosage: 444 MG, TIW(DAILY DOSE: 444 MG MILLGRAM(S) EVERY 3 WEEKS)
     Route: 042
     Dates: start: 20140513, end: 20140624
  11. HERCEPTIN [Suspect]
     Active Substance: TRASTUZUMAB
     Dosage: 486 MG, TIW(DAILY DOSE: 486 MG MILLGRAM(S) EVERY 3 WEEKS)
     Route: 042
  12. HERCEPTIN [Suspect]
     Active Substance: TRASTUZUMAB
     Indication: Product used for unknown indication
     Dosage: 648 MG(LOADING DOSE)
     Route: 042
     Dates: start: 20140310, end: 20140310
  13. PERJETA [Suspect]
     Active Substance: PERTUZUMAB
     Indication: HER2 positive breast cancer
     Dosage: 840 MG(LOADING DOSE)
     Route: 042
     Dates: start: 20140307, end: 20140307
  14. PERJETA [Suspect]
     Active Substance: PERTUZUMAB
     Dosage: 420 MG, TIW(MAINTENANCE DOSE)
     Route: 042
     Dates: start: 20140331, end: 20141013
  15. TRASTUZUMAB [Suspect]
     Active Substance: TRASTUZUMAB
     Dosage: 444 MG, TIW(444.000MG TIW)
     Route: 042
     Dates: start: 20140513, end: 20140624
  16. TRASTUZUMAB [Suspect]
     Active Substance: TRASTUZUMAB
     Dosage: 422 MG
     Route: 042
     Dates: start: 20140805, end: 20141013
  17. TRASTUZUMAB [Suspect]
     Active Substance: TRASTUZUMAB
     Dosage: 432 MG, TIW
     Route: 042
     Dates: start: 20130422, end: 20130422
  18. TRASTUZUMAB [Suspect]
     Active Substance: TRASTUZUMAB
     Dosage: 444 MG, TIW
     Route: 042
     Dates: start: 20140513, end: 20140624
  19. TRASTUZUMAB [Suspect]
     Active Substance: TRASTUZUMAB
     Dosage: 486 MG, TIW
     Route: 042
     Dates: start: 20140715, end: 20140715
  20. TRASTUZUMAB [Suspect]
     Active Substance: TRASTUZUMAB
     Dosage: 648 MG, TIW
     Route: 042
     Dates: end: 20140916
  21. TRASTUZUMAB [Suspect]
     Active Substance: TRASTUZUMAB
     Indication: HER2 positive breast cancer
     Dosage: 648 MG(LOADING DOSE)
     Route: 042
     Dates: start: 20140310, end: 20140310
  22. Ciprobay [Concomitant]
     Indication: Leukopenia
     Dosage: 1000 MG, QD(DAILY DOSE: 1000 MG MILLGRAM(S) EVERY DAYS)
     Route: 048
     Dates: start: 20140319, end: 20140324
  23. Ciprobay [Concomitant]
     Indication: Neutropenia
     Dosage: 1000 MG, QD(DAILY DOSE: 1000 MG MILLGRAM(S) EVERY DAYS)
     Route: 048
     Dates: start: 20140319, end: 20140324
  24. Ciprobay [Concomitant]
     Dosage: 1000 MG, QD(DAILY DOSE: 1000 MG MILLGRAM(S) EVERY DAYS)
     Route: 048
     Dates: start: 20140523, end: 20140527
  25. Ciprobay [Concomitant]
     Dosage: 1000 MG, QD(DAILY DOSE: 1000 MG MILLGRAM(S) EVERY DAYS)
     Route: 048
     Dates: start: 20140903, end: 20140907
  26. Ciprohexal [Concomitant]
     Indication: Neutropenia
     Dosage: 1000 MG, QD(DAILY DOSE: 1000 MG MILLGRAM(S) EVERY DAYS)
     Route: 048
     Dates: start: 20140610, end: 20140617
  27. Ciprohexal [Concomitant]
     Dosage: 1000 MG, QD(DAILY DOSE: 1000 MG MILLGRAM(S) EVERY DAYS)
     Route: 048
     Dates: start: 20140812, end: 20140816
  28. DEXAMETHASONE [Concomitant]
     Active Substance: DEXAMETHASONE
     Dosage: 2 MG, QD(DAILY DOSE: 2 MG MILLGRAM(S) EVERY DAYS)
     Route: 048
     Dates: start: 20140414, end: 20140416
  29. DEXAMETHASONE [Concomitant]
     Active Substance: DEXAMETHASONE
     Indication: Hypersensitivity
     Dosage: 4 MG, QD(DAILY DOSE: 4 MG MILLGRAM(S) EVERY DAYS)
     Route: 048
     Dates: start: 20140411, end: 20140413
  30. DEXAMETHASONE [Concomitant]
     Active Substance: DEXAMETHASONE
     Dosage: 4 MG, QD(DAILY DOSE: 4 MG MILLGRAM(S) EVERY DAYS)
     Route: 048
     Dates: start: 20140303, end: 20140310
  31. DEXAMETHASONE [Concomitant]
     Active Substance: DEXAMETHASONE
     Dosage: 6 MG, QD(DAILY DOSE: 6 MG MILLGRAM(S) EVERY DAYS)
     Route: 048
     Dates: start: 20140408, end: 20140410
  32. DEXAMETHASONE [Concomitant]
     Active Substance: DEXAMETHASONE
     Dosage: 8 MG, QD(DAILY DOSE: 8 MG MILLGRAM(S) EVERY DAYS)
     Route: 048
     Dates: start: 20140303, end: 20140407
  33. DEXAMETHASONE [Concomitant]
     Active Substance: DEXAMETHASONE
     Dosage: 8 MG
     Route: 042
     Dates: start: 20140331
  34. LEVOTHYROXINE SODIUM [Concomitant]
     Active Substance: LEVOTHYROXINE SODIUM
     Indication: Hypothyroidism
     Dosage: 75 UG, QD(DAILY DOSE: 75 ?G MICROGRAM(S) EVERY DAYS)
     Route: 048
  35. POTASSIUM [Concomitant]
     Active Substance: POTASSIUM
     Indication: Hypokalaemia
     Dosage: UNK
     Route: 065
  36. RANITIDINE HYDROCHLORIDE [Concomitant]
     Active Substance: RANITIDINE HYDROCHLORIDE
     Dosage: 50 MG
     Route: 042
     Dates: start: 20140331
  37. RANITIDINE HYDROCHLORIDE [Concomitant]
     Active Substance: RANITIDINE HYDROCHLORIDE
     Indication: Premedication
     Dosage: 50.000MG
     Route: 042
     Dates: start: 20140331
  38. CLEMASTINE FUMARATE [Concomitant]
     Active Substance: CLEMASTINE FUMARATE
     Indication: Product used for unknown indication
     Dosage: 2 MG(IN EACH CYCLE)
     Route: 042
     Dates: start: 20140331

REACTIONS (19)
  - Metastases to central nervous system [Fatal]
  - Cerebral disorder [Fatal]
  - Dysstasia [Not Recovered/Not Resolved]
  - Leukopenia [Recovered/Resolved]
  - Visual impairment [Not Recovered/Not Resolved]
  - Neutropenia [Recovered/Resolved]
  - Dysarthria [Not Recovered/Not Resolved]
  - Balance disorder [Not Recovered/Not Resolved]
  - Fatigue [Not Recovered/Not Resolved]
  - Visual impairment [Not Recovered/Not Resolved]
  - Compression fracture [Not Recovered/Not Resolved]
  - Leukopenia [Recovered/Resolved]
  - Fall [Unknown]
  - Weight decreased [Not Recovered/Not Resolved]
  - Gait disturbance [Not Recovered/Not Resolved]
  - Diarrhoea [Recovered/Resolved]
  - Paraesthesia [Not Recovered/Not Resolved]
  - Vomiting [Recovered/Resolved]
  - Disorientation [Not Recovered/Not Resolved]

NARRATIVE: CASE EVENT DATE: 20140312
